FAERS Safety Report 5504816-X (Version None)
Quarter: 2007Q4

REPORT INFORMATION
  Report Type: 
  Country: None (occurrence: None)
  Receive Date: 20071031
  Receipt Date: 20071031
  Transmission Date: 20080405
  Serious: No
  Sender: FDA-Public Use
  Company Number: None

PATIENT
  Sex: Female

DRUGS (1)
  1. TRI-BUFFERED ASPIRIN [Suspect]

REACTIONS (4)
  - DOCUMENTED HYPERSENSITIVITY TO ADMINISTERED DRUG [None]
  - PHARMACEUTICAL PRODUCT COMPLAINT [None]
  - REACTION TO DRUG EXCIPIENTS [None]
  - UNEVALUABLE EVENT [None]
